FAERS Safety Report 18269349 (Version 1)
Quarter: 2020Q3

REPORT INFORMATION
  Report Type: Spontaneous
  Country: IN (occurrence: IN)
  Receive Date: 20200915
  Receipt Date: 20200915
  Transmission Date: 20201103
  Serious: Yes (Hospitalization, Other)
  Sender: FDA-Public Use
  Company Number: IN-JAZZ-2020-IN-007230

PATIENT
  Age: 14 Year
  Sex: Female

DRUGS (5)
  1. DAUNORUBICIN [Concomitant]
     Active Substance: DAUNORUBICIN
     Indication: B-CELL TYPE ACUTE LEUKAEMIA
     Dosage: 30 MILLIGRAM/SQ. METER (CYCLE) ONCE WEEKLY
  2. METHOTREXATE. [Concomitant]
     Active Substance: METHOTREXATE
     Indication: B-CELL TYPE ACUTE LEUKAEMIA
     Dosage: 12 MILLIGRAM (CYCLE) ONCE WEEKLY
     Route: 037
  3. PREDNISOLONE. [Suspect]
     Active Substance: PREDNISOLONE
     Indication: B-CELL TYPE ACUTE LEUKAEMIA
     Dosage: 60 MILLIGRAM/SQ. METER, QD
     Route: 065
  4. VINCRISTINE [Concomitant]
     Active Substance: VINCRISTINE
     Indication: B-CELL TYPE ACUTE LEUKAEMIA
     Dosage: 1.5 MILLIGRAM/SQ. METER (CYCLE) ONCE WEEKLY
  5. ASPARAGINASE [Suspect]
     Active Substance: ASPARAGINASE
     Indication: B-CELL TYPE ACUTE LEUKAEMIA
     Dosage: 10000 IU PER SQUARE METER (INDUCTION PHASE DAY 6,9,12,15,18)
     Route: 065

REACTIONS (2)
  - Diabetic ketoacidosis [Recovered/Resolved]
  - Pancreatitis acute [Recovered/Resolved]
